FAERS Safety Report 25770928 (Version 5)
Quarter: 2025Q4

REPORT INFORMATION
  Report Type: Spontaneous
  Country: CA (occurrence: CA)
  Receive Date: 20250908
  Receipt Date: 20251113
  Transmission Date: 20260118
  Serious: Yes (Hospitalization, Disabling)
  Sender: CELLTRION
  Company Number: CA-CELLTRION INC.-2024CA020287

PATIENT

DRUGS (12)
  1. INFLIXIMAB [Suspect]
     Active Substance: INFLIXIMAB
     Indication: Crohn^s disease
     Dosage: 5 MG/KG EVERY 8 WEEKS
     Route: 042
     Dates: start: 20250410
  2. INFLIXIMAB [Suspect]
     Active Substance: INFLIXIMAB
     Dosage: UNK
     Route: 042
  3. INFLIXIMAB [Suspect]
     Active Substance: INFLIXIMAB
     Dosage: 5 MG/KG EVERY 4 WEEKS
     Route: 042
     Dates: start: 20250410
  4. YUFLYMA [Suspect]
     Active Substance: ADALIMUMAB-AATY
     Indication: Crohn^s disease
     Dosage: 80 MG, Q2WEEKS
     Route: 058
     Dates: start: 20240816
  5. YUFLYMA [Suspect]
     Active Substance: ADALIMUMAB-AATY
     Dosage: 80 MG, Q2WEEKS
     Route: 058
     Dates: start: 20240817
  6. YUFLYMA [Suspect]
     Active Substance: ADALIMUMAB-AATY
     Dosage: 40 MG, EVERY 14 DAYS
     Route: 058
     Dates: start: 20240806
  7. VIT D [VITAMIN D NOS] [Concomitant]
     Indication: Product used for unknown indication
     Route: 065
  8. VITAMIN B12 [Concomitant]
     Active Substance: CYANOCOBALAMIN
     Indication: Product used for unknown indication
     Dosage: ROUTE OF ADMINISTRATION: INJECTION
     Route: 065
  9. VITAMIN B12 [Concomitant]
     Active Substance: CYANOCOBALAMIN
     Dosage: UNK
     Route: 065
  10. DOXYCYCLINE [Concomitant]
     Active Substance: DOXYCYCLINE
     Indication: Hidradenitis
     Dosage: 200 MG, DAILY
     Route: 065
  11. DOXYCYCLINE [Concomitant]
     Active Substance: DOXYCYCLINE
     Dosage: 200 MG
     Route: 065
  12. DIETARY SUPPLEMENT [Concomitant]
     Active Substance: DIETARY SUPPLEMENT
     Indication: Product used for unknown indication
     Dosage: UNK
     Route: 065

REACTIONS (6)
  - Intervertebral disc protrusion [Unknown]
  - Symptom recurrence [Unknown]
  - Pain [Unknown]
  - Drug ineffective [Unknown]
  - Intentional product use issue [Unknown]
  - Therapy interrupted [Unknown]
